FAERS Safety Report 14046293 (Version 1)
Quarter: 2017Q4

REPORT INFORMATION
  Report Type: Spontaneous
  Country: GB (occurrence: GB)
  Receive Date: 20171005
  Receipt Date: 20171005
  Transmission Date: 20180321
  Serious: Yes (Other)
  Sender: FDA-Public Use
  Company Number: GB-AUROBINDO-AUR-APL-2017-41423

PATIENT
  Age: 27 Year
  Sex: Male
  Weight: 67.12 kg

DRUGS (1)
  1. IBUPROFEN. [Suspect]
     Active Substance: IBUPROFEN
     Indication: STOMATITIS
     Dosage: 200 MG, UNK
     Route: 048
     Dates: start: 20170904, end: 20170909

REACTIONS (1)
  - Balanitis candida [Recovering/Resolving]
